FAERS Safety Report 14949336 (Version 2)
Quarter: 2018Q3

REPORT INFORMATION
  Report Type: Spontaneous
  Country: US (occurrence: US)
  Receive Date: 20180529
  Receipt Date: 20180709
  Transmission Date: 20181010
  Serious: No
  Sender: FDA-Public Use
  Company Number: US-ACTELION-A-NJ2018-171932

PATIENT
  Age: 72 Year
  Sex: Female

DRUGS (1)
  1. VALCHLOR [Suspect]
     Active Substance: MECHLORETHAMINE
     Indication: MYCOSIS FUNGOIDES
     Dosage: UNK, QD
     Route: 061
     Dates: start: 20180416

REACTIONS (6)
  - Memory impairment [Recovered/Resolved]
  - Postoperative wound infection [Unknown]
  - Pruritus [Unknown]
  - Drug dose omission [Recovered/Resolved]
  - Skin reaction [Unknown]
  - Urticaria [Unknown]
